FAERS Safety Report 20930815 (Version 4)
Quarter: 2022Q3

REPORT INFORMATION
  Report Type: Spontaneous
  Country: IT (occurrence: IT)
  Receive Date: 20220608
  Receipt Date: 20220704
  Transmission Date: 20221027
  Serious: Yes (Other)
  Sender: FDA-Public Use
  Company Number: IT-SANOFI-01118406

PATIENT
  Age: 55 Year
  Sex: Male

DRUGS (7)
  1. APIDRA SOLOSTAR [Suspect]
     Active Substance: INSULIN GLULISINE
     Indication: Diabetes mellitus
     Dosage: UNK
     Dates: start: 202010
  2. TOUJEO [Concomitant]
     Active Substance: INSULIN GLARGINE
     Dosage: 16 U, QD
  3. TOUJEO [Concomitant]
     Active Substance: INSULIN GLARGINE
     Dosage: 18 U, QD (PER DAY)
  4. BARACLUDE [Concomitant]
     Active Substance: ENTECAVIR
     Indication: Hepatitis B
     Dosage: UNK
     Dates: start: 202010
  5. DURETIC [Concomitant]
  6. AMLODIPINE BESYLATE\OLMESARTAN MEDOXOMIL [Concomitant]
     Active Substance: AMLODIPINE BESYLATE\OLMESARTAN MEDOXOMIL
     Indication: Hypertension
     Dosage: UNK
  7. AMLODIPINE BESYLATE\OLMESARTAN MEDOXOMIL [Concomitant]
     Active Substance: AMLODIPINE BESYLATE\OLMESARTAN MEDOXOMIL
     Indication: Hypertension
     Dosage: UNK

REACTIONS (9)
  - Haemorrhage [Unknown]
  - Injection site discomfort [Recovered/Resolved]
  - Injection site haemorrhage [Unknown]
  - Injection site pain [Recovered/Resolved]
  - Somnolence [Unknown]
  - Hyperglycaemia [Recovered/Resolved]
  - Drug hypersensitivity [Unknown]
  - Blood glucose increased [Unknown]
  - Product storage error [Unknown]
